FAERS Safety Report 13777064 (Version 2)
Quarter: 2017Q3

REPORT INFORMATION
  Report Type: Spontaneous
  Country: US (occurrence: US)
  Receive Date: 20170721
  Receipt Date: 20170915
  Transmission Date: 20171127
  Serious: No
  Sender: FDA-Public Use
  Company Number: US-BAYER-2017-139371

PATIENT
  Age: 45 Year
  Sex: Male

DRUGS (1)
  1. FINACEA [Suspect]
     Active Substance: AZELAIC ACID
     Indication: SKIN IRRITATION
     Dosage: UNK
     Route: 062
     Dates: start: 201705

REACTIONS (2)
  - Drug dose omission [Unknown]
  - Wrong technique in product usage process [None]
